FAERS Safety Report 14575606 (Version 1)
Quarter: 2018Q1

REPORT INFORMATION
  Report Type: Spontaneous
  Country: IR (occurrence: IR)
  Receive Date: 20180227
  Receipt Date: 20180227
  Transmission Date: 20180509
  Serious: Yes (Hospitalization)
  Sender: FDA-Public Use
  Company Number: IR-ACCORD-063908

PATIENT
  Age: 53 Year
  Sex: Female

DRUGS (1)
  1. MITOMYCIN. [Suspect]
     Active Substance: MITOMYCIN
     Dosage: STRENGTH: 0.2% SOLUTION

REACTIONS (5)
  - Retinal haemorrhage [Unknown]
  - Retinal degeneration [Unknown]
  - Wrong drug administered [Unknown]
  - Retinal vascular disorder [Unknown]
  - Necrotising retinitis [Unknown]
